FAERS Safety Report 10612818 (Version 1)
Quarter: 2014Q4

REPORT INFORMATION
  Report Type: Spontaneous
  Country: CA (occurrence: CA)
  Receive Date: 20141127
  Receipt Date: 20141127
  Transmission Date: 20150529
  Serious: Yes (Other)
  Sender: FDA-Public Use
  Company Number: CA-ELI_LILLY_AND_COMPANY-CA201411007388

PATIENT
  Age: 27 Year
  Sex: Male
  Weight: 68.03 kg

DRUGS (3)
  1. METHADONE [Concomitant]
     Active Substance: METHADONE HYDROCHLORIDE
  2. CYMBALTA [Suspect]
     Active Substance: DULOXETINE HYDROCHLORIDE
     Indication: PRODUCT USED FOR UNKNOWN INDICATION
     Dosage: 60 MG, QD
     Route: 065
  3. FLUANXOL [Concomitant]
     Active Substance: FLUPENTIXOL

REACTIONS (2)
  - Hepatic enzyme abnormal [Recovered/Resolved]
  - Malaise [Recovered/Resolved]
